FAERS Safety Report 14273339 (Version 1)
Quarter: 2017Q4

REPORT INFORMATION
  Report Type: Spontaneous
  Country: US (occurrence: US)
  Receive Date: 20171212
  Receipt Date: 20171212
  Transmission Date: 20180321
  Serious: Yes (Death)
  Sender: FDA-Public Use
  Company Number: US-PERRIGO-17US030802

PATIENT
  Age: 44 Year
  Sex: Female

DRUGS (7)
  1. ESZOPICLONE. [Suspect]
     Active Substance: ESZOPICLONE
     Indication: INTENTIONAL PRODUCT MISUSE
     Dosage: UNK
     Route: 048
  2. VALPROIC ACID. [Suspect]
     Active Substance: VALPROIC ACID
     Indication: INTENTIONAL PRODUCT MISUSE
     Dosage: UNK
     Route: 048
  3. MORPHINE SULFATE. [Suspect]
     Active Substance: MORPHINE SULFATE
     Indication: INTENTIONAL PRODUCT MISUSE
     Dosage: UNK
     Route: 048
  4. OMEPRAZOLE. [Suspect]
     Active Substance: OMEPRAZOLE
     Indication: INTENTIONAL PRODUCT MISUSE
     Dosage: UNK
     Route: 048
  5. METHADONE [Suspect]
     Active Substance: METHADONE HYDROCHLORIDE
     Indication: INTENTIONAL PRODUCT MISUSE
     Dosage: UNK
     Route: 048
  6. AMITRIPTYLINE [Suspect]
     Active Substance: AMITRIPTYLINE
     Indication: INTENTIONAL PRODUCT MISUSE
     Dosage: UNK
     Route: 048
  7. ALCOHOL. [Suspect]
     Active Substance: ALCOHOL
     Indication: INTENTIONAL PRODUCT MISUSE
     Dosage: UNK
     Route: 048

REACTIONS (1)
  - Death [Fatal]
